FAERS Safety Report 25291498 (Version 1)
Quarter: 2025Q2

REPORT INFORMATION
  Report Type: Spontaneous
  Country: US (occurrence: US)
  Receive Date: 20250510
  Receipt Date: 20250510
  Transmission Date: 20250716
  Serious: No
  Sender: SANOFI AVENTIS
  Company Number: US-SA-2025SA122313

PATIENT
  Age: 24 Year
  Sex: Female

DRUGS (6)
  1. DUPIXENT [Suspect]
     Active Substance: DUPILUMAB
     Indication: Dermatitis atopic
     Dosage: 300.000MG QOW
     Route: 058
     Dates: start: 20241121
  2. ALLOPURINOL [Concomitant]
     Active Substance: ALLOPURINOL
  3. CLOBETASOL [Concomitant]
     Active Substance: CLOBETASOL
  4. VITAMINS [Concomitant]
     Active Substance: VITAMINS
  5. URSODIOL [Concomitant]
     Active Substance: URSODIOL
  6. Women multi [Concomitant]

REACTIONS (1)
  - Maternal exposure during pregnancy [Unknown]
